FAERS Safety Report 26171451 (Version 1)
Quarter: 2025Q4

REPORT INFORMATION
  Report Type: Spontaneous
  Country: CA (occurrence: CA)
  Receive Date: 20251217
  Receipt Date: 20251217
  Transmission Date: 20260118
  Serious: Yes (Hospitalization)
  Sender: EISAI
  Company Number: CA-Eisai-EC-2025-201821

PATIENT
  Sex: Male

DRUGS (1)
  1. DAYVIGO [Suspect]
     Active Substance: LEMBOREXANT
     Indication: Product used for unknown indication
     Route: 048
     Dates: start: 202511, end: 20251207

REACTIONS (5)
  - Balance disorder [Unknown]
  - Vomiting [Unknown]
  - Blood potassium decreased [Unknown]
  - Cognitive disorder [Unknown]
  - Hypoxia [Unknown]

NARRATIVE: CASE EVENT DATE: 20251207
